FAERS Safety Report 18930834 (Version 1)
Quarter: 2021Q1

REPORT INFORMATION
  Report Type: Spontaneous
  Country: US (occurrence: US)
  Receive Date: 20210224
  Receipt Date: 20210224
  Transmission Date: 20210420
  Serious: No
  Sender: FDA-Public Use
  Company Number: US-BIOCODEX SA-2021000024

PATIENT
  Sex: Female
  Weight: 80.29 kg

DRUGS (6)
  1. VITAMIN D                          /00107901/ [Concomitant]
     Active Substance: ERGOCALCIFEROL
  2. ZONISAMIDE. [Concomitant]
     Active Substance: ZONISAMIDE
  3. DIACOMIT [Suspect]
     Active Substance: STIRIPENTOL
     Indication: EPILEPSY
     Dosage: 1000 MG THREE TIMES A DAY
     Route: 065
     Dates: start: 20200804, end: 20200813
  4. VIMPAT [Concomitant]
     Active Substance: LACOSAMIDE
  5. CLOBAZAM. [Concomitant]
     Active Substance: CLOBAZAM
     Indication: SEVERE MYOCLONIC EPILEPSY OF INFANCY
  6. FOLIC ACID. [Concomitant]
     Active Substance: FOLIC ACID

REACTIONS (2)
  - Product dose omission issue [Unknown]
  - Somnolence [Unknown]
